FAERS Safety Report 5301633-0 (Version None)
Quarter: 2007Q1

REPORT INFORMATION
  Report Type: 
  Country: None (occurrence: None)
  Receive Date: 20070201
  Receipt Date: 20061218
  Transmission Date: 20070707
  Serious: No
  Sender: FDA-Public Use
  Company Number: 2006PV027143

PATIENT
  Age: 42 Year
  Sex: Female

DRUGS (1)
  1. BYETTA [Suspect]
     Indication: DRUG USE FOR UNKNOWN INDICATION
     Dosage: 10 MCG; ; SC
     Route: 058
     Dates: start: 20060101

REACTIONS (4)
  - BLOOD GLUCOSE DECREASED [None]
  - FEELING ABNORMAL [None]
  - MEDICATION ERROR [None]
  - NAUSEA [None]
